FAERS Safety Report 18654319 (Version 1)
Quarter: 2020Q4

REPORT INFORMATION
  Report Type: Spontaneous
  Country: GB (occurrence: GB)
  Receive Date: 20201223
  Receipt Date: 20201223
  Transmission Date: 20210114
  Serious: Yes (Other)
  Sender: FDA-Public Use
  Company Number: GB-LEO PHARMA-333850

PATIENT
  Age: 6 Year
  Sex: Female

DRUGS (5)
  1. CETIRIZINE DIHYDROCHLORIDE [Concomitant]
     Active Substance: CETIRIZINE HYDROCHLORIDE
     Indication: PRODUCT USED FOR UNKNOWN INDICATION
  2. PROTOPIC [Suspect]
     Active Substance: TACROLIMUS
     Indication: ECZEMA
     Dosage: ENDED UP IN DAILY USE
     Route: 061
     Dates: start: 20141005, end: 20180806
  3. DERMOVATE [Suspect]
     Active Substance: CLOBETASOL
     Indication: ECZEMA
     Dosage: ENDED UP IN DAILY USE
     Route: 061
     Dates: start: 20141005, end: 20180806
  4. CUTIVATE [Suspect]
     Active Substance: FLUTICASONE PROPIONATE
     Indication: ECZEMA
     Dosage: ENDED UP IN DAILY USE
     Route: 061
     Dates: start: 20141005, end: 20180806
  5. EUMOVATE [Suspect]
     Active Substance: CLOBETASONE BUTYRATE
     Indication: ECZEMA
     Dosage: ENDED UP IN DAILY USE
     Route: 061
     Dates: start: 20141005, end: 20180806

REACTIONS (8)
  - Skin atrophy [Unknown]
  - Erythema [Unknown]
  - Steroid dependence [Not Recovered/Not Resolved]
  - Skin discolouration [Unknown]
  - Pruritus [Unknown]
  - Skin injury [Unknown]
  - Steroid withdrawal syndrome [Not Recovered/Not Resolved]
  - Swelling [Not Recovered/Not Resolved]

NARRATIVE: CASE EVENT DATE: 20150813
